FAERS Safety Report 4622792-9 (Version None)
Quarter: 2005Q1

REPORT INFORMATION
  Report Type: 
  Country: None (occurrence: None)
  Receive Date: 20050328
  Receipt Date: 20050328
  Transmission Date: 20050727
  Serious: Yes (Hospitalization)
  Sender: FDA-Public Use
  Company Number: None

PATIENT
  Sex: Male
  Weight: 77.1115 kg

DRUGS (1)
  1. CELEBREX [Suspect]
     Indication: PROSTATE CANCER
     Dosage: 400 MG  BID  ORALLY
     Route: 048
     Dates: start: 20030715

REACTIONS (3)
  - ASTHENIA [None]
  - TRANSIENT ISCHAEMIC ATTACK [None]
  - VASOSPASM [None]
